FAERS Safety Report 22654857 (Version 3)
Quarter: 2023Q4

REPORT INFORMATION
  Report Type: Spontaneous
  Country: US (occurrence: US)
  Receive Date: 20230629
  Receipt Date: 20231207
  Transmission Date: 20240110
  Serious: Yes (Other)
  Sender: FDA-Public Use
  Company Number: US-BIOVITRUM-2023-US-012316

PATIENT
  Age: 75 Year
  Sex: Female

DRUGS (2)
  1. DOPTELET [Suspect]
     Active Substance: AVATROMBOPAG MALEATE
     Indication: Immune thrombocytopenia
     Dosage: DAILY?AS ORDERED
     Route: 048
     Dates: start: 20230603, end: 20230609
  2. DOPTELET [Suspect]
     Active Substance: AVATROMBOPAG MALEATE
     Dosage: DAILY?AS ORDERED
     Route: 048
     Dates: start: 20230603, end: 20230609

REACTIONS (9)
  - Renal impairment [Unknown]
  - Illness [Unknown]
  - Abdominal pain upper [Unknown]
  - Back pain [Unknown]
  - Fatigue [Unknown]
  - Gait disturbance [Unknown]
  - Liver function test abnormal [Unknown]
  - Adverse event [Unknown]
  - Drug ineffective [Unknown]
